FAERS Safety Report 8520613-5 (Version None)
Quarter: 2012Q3

REPORT INFORMATION
  Report Type: 
  Country: None (occurrence: None)
  Receive Date: 20120713
  Receipt Date: 20120713
  Transmission Date: 20120928
  Serious: No
  Sender: FDA-Public Use
  Company Number: None

PATIENT
  Age: 65 Year
  Sex: Female
  Weight: 68.9467 kg

DRUGS (1)
  1. ZETIA [Suspect]
     Indication: BLOOD CHOLESTEROL
     Dosage: 10 MG ONCE A DAY BY MOUTH
     Route: 048
     Dates: start: 20111010, end: 20120504

REACTIONS (11)
  - HEART SOUNDS ABNORMAL [None]
  - FAECES DISCOLOURED [None]
  - ABNORMAL FAECES [None]
  - NERVOUS SYSTEM DISORDER [None]
  - DYSPNOEA [None]
  - CHEST PAIN [None]
  - SLEEP DISORDER [None]
  - ERUCTATION [None]
  - FEELING ABNORMAL [None]
  - HYPOAESTHESIA [None]
  - DYSKINESIA [None]
